FAERS Safety Report 8344588-7 (Version None)
Quarter: 2012Q2

REPORT INFORMATION
  Report Type: 
  Country: None (occurrence: None)
  Receive Date: 20120508
  Receipt Date: 20120423
  Transmission Date: 20120825
  Serious: Yes (Hospitalization, Other)
  Sender: FDA-Public Use
  Company Number: CA-ROCHE-1063036

PATIENT
  Sex: Female
  Weight: 56.296 kg

DRUGS (10)
  1. LEUCOVORIN CALCIUM [Concomitant]
  2. METRONIDAZOLE [Concomitant]
  3. CRESTOR [Concomitant]
  4. ZOPICLONE [Concomitant]
     Indication: INSOMNIA
  5. VENLAFAXINE [Concomitant]
  6. LAMISIL [Concomitant]
  7. CELEBREX [Concomitant]
  8. RISEDRONATE SODIUM [Concomitant]
  9. ACTEMRA [Suspect]
     Indication: RHEUMATOID ARTHRITIS
     Route: 042
     Dates: start: 20101229
  10. PREDNISONE TAB [Concomitant]

REACTIONS (3)
  - OSTEOPOROSIS [None]
  - SCIATICA [None]
  - BACK PAIN [None]
